FAERS Safety Report 6700873-3 (Version None)
Quarter: 2010Q2

REPORT INFORMATION
  Report Type: 
  Country: None (occurrence: None)
  Receive Date: 20100428
  Receipt Date: 20100421
  Transmission Date: 20101027
  Serious: Yes (Hospitalization)
  Sender: FDA-Public Use
  Company Number: FR-ASTRAZENECA-2010SE02552

PATIENT
  Age: 21677 Day
  Sex: Female

DRUGS (10)
  1. CRESTOR [Suspect]
     Route: 048
     Dates: start: 20090101, end: 20090515
  2. FURADANTINE [Suspect]
     Indication: URINARY TRACT INFECTION
     Route: 048
     Dates: start: 20060101, end: 20090515
  3. IBUPROFEN [Suspect]
     Indication: ARTHRALGIA
     Dosage: AS REQUIRED (REGULAR INTAKES ESTIMATED AT 15 DAYS PER MONTH)
     Route: 048
     Dates: end: 20091015
  4. DOLIPRANE [Suspect]
     Indication: ARTHRALGIA
     Dosage: AS REQUIRED (REGULAR INTAKES ESTIMATED AT 15 DAYS PER MONTH)
     Route: 048
     Dates: end: 20091015
  5. SEROPLEX [Suspect]
     Route: 048
     Dates: start: 20090101, end: 20090515
  6. PROPOFAN [Concomitant]
  7. CORTICOSTEROIDS [Concomitant]
     Indication: PULMONARY SARCOIDOSIS
  8. CORTICOSTEROIDS [Concomitant]
     Dates: start: 20091029
  9. CORTICOSTEROIDS [Concomitant]
  10. CORTICOSTEROIDS [Concomitant]

REACTIONS (2)
  - CYTOLYTIC HEPATITIS [None]
  - HEPATIC FIBROSIS [None]
